FAERS Safety Report 9659852 (Version 1)
Quarter: 2013Q4

REPORT INFORMATION
  Report Type: Report from Study
  Country: FR (occurrence: FR)
  Receive Date: 20131031
  Receipt Date: 20131031
  Transmission Date: 20140711
  Serious: Yes (Death, Hospitalization, Other)
  Sender: FDA-Public Use
  Company Number: FR-ASTELLAS-2013EU009391

PATIENT
  Age: 83 Year
  Sex: Male
  Weight: 54 kg

DRUGS (5)
  1. ENZALUTAMIDE [Suspect]
     Indication: PROSTATE CANCER
     Dosage: 160 MG, UID/QD
     Route: 048
     Dates: start: 20130712, end: 20130719
  2. SPIRIVA [Concomitant]
     Indication: ASTHMA
     Dosage: UNK
     Route: 065
     Dates: end: 20130719
  3. FORADIL [Concomitant]
     Indication: ASTHMA
     Dosage: UNK
     Route: 065
     Dates: end: 20130719
  4. KARDEGIC [Concomitant]
     Indication: AORTIC STENOSIS
     Dosage: 75 MG, UID/QD
     Route: 048
     Dates: end: 20130719
  5. TEMESTA                            /00273201/ [Concomitant]
     Indication: SLEEP DISORDER
     Dosage: 1 MG, UNKNOWN/D
     Route: 065
     Dates: end: 20130719

REACTIONS (4)
  - Pulmonary embolism [Fatal]
  - Asthenia [Fatal]
  - Balance disorder [Fatal]
  - Dyspnoea [Recovered/Resolved]
